FAERS Safety Report 24308532 (Version 1)
Quarter: 2024Q3

REPORT INFORMATION
  Report Type: Spontaneous
  Country: US (occurrence: US)
  Receive Date: 20240911
  Receipt Date: 20240911
  Transmission Date: 20241017
  Serious: No
  Sender: FRESENIUS KABI
  Company Number: US-FreseniusKabi-FK202413490

PATIENT
  Age: 35 Year
  Sex: Female

DRUGS (3)
  1. DILAUDID [Suspect]
     Active Substance: HYDROMORPHONE HYDROCHLORIDE
     Indication: Product used for unknown indication
  2. LUPKYNIS [Suspect]
     Active Substance: VOCLOSPORIN
     Indication: Lupus nephritis
     Dosage: 7.9 MILLIGRAM?FORM OF ADMIN.: SOFTGEL CAPSULE?FOUR CAPSULES DAILY
     Route: 048
     Dates: start: 20230412
  3. LUPKYNIS [Suspect]
     Active Substance: VOCLOSPORIN
     Indication: Systemic lupus erythematosus
     Dosage: 7.9 MILLIGRAM?FORM OF ADMIN.: SOFTGEL CAPSULE
     Route: 048
     Dates: start: 20230412

REACTIONS (2)
  - Drug hypersensitivity [Unknown]
  - Gastrooesophageal reflux disease [Unknown]
